FAERS Safety Report 12889118 (Version 1)
Quarter: 2016Q4

REPORT INFORMATION
  Report Type: Report from Study
  Country: PK (occurrence: PK)
  Receive Date: 20161027
  Receipt Date: 20161027
  Transmission Date: 20170207
  Serious: Yes (Death, Other)
  Sender: FDA-Public Use
  Company Number: PK-INCYTE CORPORATION-2016IN006800

PATIENT
  Age: 70 Year
  Sex: Male
  Weight: 51 kg

DRUGS (1)
  1. JAKAVI [Suspect]
     Active Substance: RUXOLITINIB
     Indication: PRIMARY MYELOFIBROSIS
     Dosage: 15 MG, BID
     Route: 048
     Dates: start: 20161010, end: 20161020

REACTIONS (4)
  - Death [Fatal]
  - Haematemesis [Unknown]
  - Paralysis [Unknown]
  - Coma [Unknown]

NARRATIVE: CASE EVENT DATE: 20161021
